FAERS Safety Report 18448912 (Version 5)
Quarter: 2022Q2

REPORT INFORMATION
  Report Type: Spontaneous
  Country: US (occurrence: US)
  Receive Date: 20201030
  Receipt Date: 20220531
  Transmission Date: 20220721
  Serious: Yes (Other)
  Sender: FDA-Public Use
  Company Number: US-PFIZER INC-2019464297

PATIENT
  Age: 2 Year
  Sex: Male
  Weight: 16 kg

DRUGS (4)
  1. BENEFIX [Suspect]
     Active Substance: COAGULATION FACTOR IX RECOMBINANT HUMAN\ISOPROPYL ALCOHOL
     Indication: Haemorrhage
     Dosage: 1400 UNITS (+5%) = 100 U/KG DOSING DAILY X 2 FOR CURRENT BLEED AND DAILY X 1 FOR FUTUR
     Dates: start: 201910
  2. BENEFIX [Suspect]
     Active Substance: COAGULATION FACTOR IX RECOMBINANT HUMAN\ISOPROPYL ALCOHOL
     Dosage: 1500 UNITS (+5%)= 100 UNITS/KG DAILY X 1 FOR BLEEDS ON DEMAND
     Dates: start: 202008
  3. BENEFIX [Suspect]
     Active Substance: COAGULATION FACTOR IX RECOMBINANT HUMAN\ISOPROPYL ALCOHOL
     Dosage: 1500 UNITS (+5%) = 100 U/KG DAILY X 1 ON DEMAND
     Dates: start: 202010
  4. BENEFIX [Suspect]
     Active Substance: COAGULATION FACTOR IX RECOMBINANT HUMAN\ISOPROPYL ALCOHOL
     Dosage: 1600 UNITS (+5%) = 100 U/KG DAILY X 3 DAYS, THEN EVERY OTHER DAY UNTIL HEMATOMA IS FLAT
     Dates: start: 202011

REACTIONS (2)
  - Haemorrhage [Unknown]
  - Haematoma [Unknown]

NARRATIVE: CASE EVENT DATE: 20200101
